FAERS Safety Report 19179663 (Version 1)
Quarter: 2021Q2

REPORT INFORMATION
  Report Type: Spontaneous
  Country: US (occurrence: US)
  Receive Date: 20210426
  Receipt Date: 20210426
  Transmission Date: 20210717
  Serious: Yes (Other)
  Sender: FDA-Public Use
  Company Number: US-ACCORD-223084

PATIENT
  Age: 34 Year
  Sex: Female

DRUGS (3)
  1. FLUOROURACIL. [Suspect]
     Active Substance: FLUOROURACIL
     Indication: COLORECTAL CANCER STAGE III
     Dates: start: 201612, end: 201703
  2. OXALIPLATIN. [Suspect]
     Active Substance: OXALIPLATIN
     Indication: COLORECTAL CANCER STAGE III
     Dates: start: 201612
  3. FOLINIC ACID [Suspect]
     Active Substance: LEUCOVORIN
     Indication: COLORECTAL CANCER STAGE III
     Dates: start: 201612, end: 201703

REACTIONS (2)
  - Platelet count decreased [Unknown]
  - Neuropathy peripheral [Recovering/Resolving]

NARRATIVE: CASE EVENT DATE: 2017
